FAERS Safety Report 9490810 (Version 4)
Quarter: 2014Q4

REPORT INFORMATION
  Report Type: Spontaneous
  Country: US (occurrence: US)
  Receive Date: 20130830
  Receipt Date: 20141002
  Transmission Date: 20150529
  Serious: Yes (Other)
  Sender: FDA-Public Use
  Company Number: US-BAYER-2013-104299

PATIENT
  Age: 19 Year
  Sex: Female
  Weight: 58.5 kg

DRUGS (4)
  1. MOTRIN [Concomitant]
     Active Substance: IBUPROFEN
  2. MIRENA [Suspect]
     Active Substance: LEVONORGESTREL
     Indication: CONTRACEPTION
     Dosage: 20 MCG/24HR, CONT
     Route: 015
     Dates: start: 20071108, end: 20080715
  3. METRONIDAZOLE. [Concomitant]
     Active Substance: METRONIDAZOLE
  4. DIFLUCAN [Concomitant]
     Active Substance: FLUCONAZOLE

REACTIONS (13)
  - Device breakage [None]
  - Depression [None]
  - Genital haemorrhage [None]
  - Infection [None]
  - Injury [None]
  - Device issue [None]
  - Anxiety [None]
  - Dyspareunia [None]
  - Pelvic pain [None]
  - Medical device pain [None]
  - Device difficult to use [None]
  - Uterine perforation [None]
  - Abdominal pain lower [None]

NARRATIVE: CASE EVENT DATE: 200804
